FAERS Safety Report 11244778 (Version 1)
Quarter: 2015Q3

REPORT INFORMATION
  Report Type: Spontaneous
  Country: US (occurrence: US)
  Receive Date: 20150707
  Receipt Date: 20150707
  Transmission Date: 20151125
  Serious: No
  Sender: FDA-Public Use
  Company Number: US-DSJP-DSU-2015-100528

PATIENT
  Age: 74 Year
  Sex: Female
  Weight: 90.7 kg

DRUGS (1)
  1. WELCHOL [Suspect]
     Active Substance: COLESEVELAM HYDROCHLORIDE
     Indication: HYPERLIPIDAEMIA
     Dosage: 1250 MG, BID
     Route: 048
     Dates: start: 201411, end: 20150105

REACTIONS (5)
  - Abdominal distension [Not Recovered/Not Resolved]
  - Influenza like illness [Not Recovered/Not Resolved]
  - Constipation [Not Recovered/Not Resolved]
  - Drug administration error [Recovered/Resolved]
  - Dyspepsia [Not Recovered/Not Resolved]

NARRATIVE: CASE EVENT DATE: 201411
